FAERS Safety Report 4517622-X (Version None)
Quarter: 2004Q4

REPORT INFORMATION
  Report Type: 
  Country: None (occurrence: None)
  Receive Date: 20041130
  Receipt Date: 20041116
  Transmission Date: 20050328
  Serious: Yes (Hospitalization)
  Sender: FDA-Public Use
  Company Number: DE_040513627

PATIENT
  Age: 83 Year
  Sex: Male

DRUGS (4)
  1. FORTEO [Suspect]
     Indication: OSTEOPOROSIS
     Dosage: 20 UG/1 DAY
     Dates: start: 20040504, end: 20040519
  2. TILIDINE [Concomitant]
  3. AMITRIPTYLINE HCL [Concomitant]
  4. IBUPROFEN [Concomitant]

REACTIONS (6)
  - DRUG HYPERSENSITIVITY [None]
  - EXANTHEM [None]
  - INJECTION SITE RASH [None]
  - PAIN [None]
  - RASH GENERALISED [None]
  - RASH MACULAR [None]
